FAERS Safety Report 4305955-1 (Version None)
Quarter: 2004Q1

REPORT INFORMATION
  Report Type: 
  Country: None (occurrence: None)
  Receive Date: 20040225
  Receipt Date: 20040213
  Transmission Date: 20041129
  Serious: Yes (Hospitalization)
  Sender: FDA-Public Use
  Company Number: 2004AP00940

PATIENT
  Age: 84 Year
  Sex: Male

DRUGS (17)
  1. IRESSA [Suspect]
     Indication: NON-SMALL CELL LUNG CANCER
     Dosage: 250 MG DAILY PO
     Route: 048
     Dates: start: 20031126, end: 20031226
  2. IRESSA [Suspect]
     Indication: SQUAMOUS CELL CARCINOMA
     Dosage: 250 MG DAILY PO
     Route: 048
     Dates: start: 20031126, end: 20031226
  3. IRESSA [Suspect]
     Indication: NON-SMALL CELL LUNG CANCER
     Dosage: 250 MG DAILY DAILY PO
     Route: 048
     Dates: start: 20031229, end: 20040120
  4. IRESSA [Suspect]
     Indication: SQUAMOUS CELL CARCINOMA
     Dosage: 250 MG DAILY DAILY PO
     Route: 048
     Dates: start: 20031229, end: 20040120
  5. CIPROXAN [Suspect]
     Indication: C-REACTIVE PROTEIN INCREASED
     Dates: start: 20040116, end: 20041119
  6. DIAZEPAM [Concomitant]
  7. CYANOCOBALAMIN [Concomitant]
  8. PREDONINE [Concomitant]
  9. GASTER [Concomitant]
  10. HALCION [Concomitant]
  11. ADONA [Concomitant]
  12. TRANSAMIN [Concomitant]
  13. LAXOBERON [Concomitant]
  14. ALOSENN [Concomitant]
  15. VINORELBINE TARTRATE [Concomitant]
  16. GEMCITABINE [Concomitant]
  17. TAXOTERE [Concomitant]

REACTIONS (6)
  - ANOREXIA [None]
  - BLOOD UREA INCREASED [None]
  - HEPATIC FUNCTION ABNORMAL [None]
  - NAUSEA [None]
  - RENAL DISORDER [None]
  - RESPIRATORY FAILURE [None]
